FAERS Safety Report 4299966-2 (Version None)
Quarter: 2004Q1

REPORT INFORMATION
  Report Type: 
  Country: None (occurrence: None)
  Receive Date: 20040209
  Receipt Date: 20040209
  Transmission Date: 20041129
  Serious: Yes (Death)
  Sender: FDA-Public Use
  Company Number: None

PATIENT
  Age: 61 Year
  Sex: Female
  Weight: 92.9874 kg

DRUGS (1)
  1. RETAVASE 10 UNITS X 2 DOSES [Suspect]
     Indication: MYOCARDIAL INFARCTION
     Dosage: 10 U IV X 1
     Route: 042
     Dates: start: 20040127

REACTIONS (2)
  - COMA [None]
  - HAEMORRHAGE INTRACRANIAL [None]
